FAERS Safety Report 8986418 (Version 2)
Quarter: 2013Q1

REPORT INFORMATION
  Report Type: Spontaneous
  Country: US (occurrence: None)
  Receive Date: 20121217
  Receipt Date: 20121227
  Transmission Date: 20140127
  Serious: Yes (Hospitalization)
  Sender: FDA-Public Use
  Company Number: USA/USA/12/0027007

PATIENT
  Age: 66 Year
  Sex: Female
  Weight: 83.92 kg

DRUGS (3)
  1. FEXOFENADINE [Suspect]
     Indication: EAR CONGESTION
     Route: 048
     Dates: start: 20121126
  2. ARMOUR THYROID (THYROID) [Concomitant]
  3. PROTONIX [Concomitant]

REACTIONS (5)
  - Insomnia [None]
  - Heart rate increased [None]
  - Extrasystoles [None]
  - Palpitations [None]
  - Blood pressure increased [None]
